FAERS Safety Report 5558190-3 (Version None)
Quarter: 2007Q4

REPORT INFORMATION
  Report Type: 
  Country: None (occurrence: None)
  Receive Date: 20071214
  Receipt Date: 20071203
  Transmission Date: 20080405
  Serious: Yes (Other)
  Sender: FDA-Public Use
  Company Number: MX-PFIZER INC-2007056453

PATIENT
  Sex: Male
  Weight: 84 kg

DRUGS (3)
  1. EXUBERA [Suspect]
     Indication: DIABETES MELLITUS
     Dosage: DAILY DOSE:15MG-FREQ:INTERVAL: DAILY
     Route: 055
     Dates: start: 20070704, end: 20071115
  2. CAPTOPRIL [Concomitant]
     Route: 048
  3. SECOTEX [Concomitant]
     Route: 048

REACTIONS (6)
  - BLOOD GLUCOSE INCREASED [None]
  - CEREBROVASCULAR DISORDER [None]
  - FATIGUE [None]
  - INTENTIONAL DRUG MISUSE [None]
  - PLEURITIC PAIN [None]
  - SOMNOLENCE [None]
